FAERS Safety Report 6998530-1 (Version None)
Quarter: 2010Q3

REPORT INFORMATION
  Report Type: 
  Country: None (occurrence: None)
  Receive Date: 20100920
  Receipt Date: 20100111
  Transmission Date: 20110219
  Serious: Yes (Other)
  Sender: FDA-Public Use
  Company Number: US-ASTRAZENECA-2009SE17812

PATIENT
  Age: 472 Month
  Sex: Male
  Weight: 145.1 kg

DRUGS (7)
  1. SEROQUEL [Suspect]
     Indication: SCHIZOAFFECTIVE DISORDER
     Route: 048
     Dates: start: 20030101, end: 20070101
  2. SEROQUEL [Suspect]
     Route: 048
     Dates: start: 20030101, end: 20070101
  3. SEROQUEL [Suspect]
     Route: 048
     Dates: end: 20080101
  4. GEODON [Concomitant]
     Dates: start: 20080201
  5. HALDOL [Concomitant]
     Dosage: INJECTON EVERY TWO WEEKS
  6. RISPERDAL [Concomitant]
     Dates: start: 20070101
  7. DEPAKOTE [Concomitant]
     Dates: start: 20070101

REACTIONS (2)
  - DIABETIC KETOACIDOSIS [None]
  - TYPE 2 DIABETES MELLITUS [None]
